FAERS Safety Report 6211669-3 (Version None)
Quarter: 2009Q2

REPORT INFORMATION
  Report Type: 
  Country: None (occurrence: None)
  Receive Date: 20090602
  Receipt Date: 20090526
  Transmission Date: 20091009
  Serious: Yes (Death)
  Sender: FDA-Public Use
  Company Number: A0787772A

PATIENT
  Sex: Male
  Weight: 48 kg

DRUGS (1)
  1. SERETIDE [Suspect]
     Dosage: 1PUFF PER DAY
     Route: 055
     Dates: start: 20080101, end: 20080101

REACTIONS (1)
  - DEATH [None]
